FAERS Safety Report 4791525-8 (Version None)
Quarter: 2005Q4

REPORT INFORMATION
  Report Type: 
  Country: None (occurrence: None)
  Receive Date: 20051007
  Receipt Date: 20050110
  Transmission Date: 20060501
  Serious: No
  Sender: FDA-Public Use
  Company Number: US-BRISTOL-MYERS SQUIBB COMPANY-12820452

PATIENT
  Sex: Female

DRUGS (1)
  1. AVAPRO [Suspect]
     Indication: HYPERTENSION
     Route: 048

REACTIONS (2)
  - FATIGUE [None]
  - MALAISE [None]
